FAERS Safety Report 7923447-5 (Version None)
Quarter: 2011Q4

REPORT INFORMATION
  Report Type: 
  Country: None (occurrence: None)
  Receive Date: 20111117
  Receipt Date: 20110203
  Transmission Date: 20120403
  Serious: No
  Sender: FDA-Public Use
  Company Number: US-AMGEN-USASP2011006705

PATIENT
  Sex: Female

DRUGS (3)
  1. ENBREL [Suspect]
     Indication: PSORIATIC ARTHROPATHY
     Dosage: 25 MG, 2 TIMES/WK
     Dates: start: 20030101, end: 20080101
  2. ENBREL [Suspect]
     Indication: PSORIASIS
  3. METHOTREXATE [Concomitant]

REACTIONS (6)
  - INJECTION SITE VESICLES [None]
  - PSORIASIS [None]
  - GASTROINTESTINAL DISORDER [None]
  - INJECTION SITE PRURITUS [None]
  - PSORIATIC ARTHROPATHY [None]
  - INJECTION SITE IRRITATION [None]
